FAERS Safety Report 8699309 (Version 2)
Quarter: 2013Q4

REPORT INFORMATION
  Report Type: Report from Study
  Country: JP (occurrence: JP)
  Receive Date: 20120802
  Receipt Date: 20131031
  Transmission Date: 20140711
  Serious: Yes (Other)
  Sender: FDA-Public Use
  Company Number: JP-009507513-2012SP036764

PATIENT
  Age: 63 Year
  Sex: Male
  Weight: 84 kg

DRUGS (19)
  1. PEGINTRON [Suspect]
     Indication: HEPATITIS C
     Dosage: UNK UNK, UNKNOWN
     Route: 058
     Dates: start: 20120514
  2. PEGINTRON [Suspect]
     Dosage: 1.5MCG/KG/WEEK
     Route: 058
     Dates: start: 20120514, end: 20120521
  3. PEGINTRON [Suspect]
     Dosage: 1.2MCG/KG/WEEK
     Route: 058
     Dates: start: 20120528
  4. REBETOL [Suspect]
     Indication: HEPATITIS C
     Dosage: UNK UNK, UNKNOWN
     Route: 048
     Dates: start: 20120514
  5. ANTIVIRAL (UNSPECIFIED) [Suspect]
     Indication: HEPATITIS C
     Dosage: 2250 MG, QD
     Route: 048
     Dates: start: 20120514, end: 20120519
  6. TELAVIC [Suspect]
     Indication: HEPATITIS C
     Route: 048
     Dates: start: 20120514, end: 20120520
  7. ADALAT CR [Concomitant]
     Indication: HYPERTENSION
     Route: 048
     Dates: end: 20120612
  8. NEUROTROPIN [Concomitant]
     Indication: SPINAL COLUMN STENOSIS
     Route: 048
     Dates: end: 20120611
  9. HYPEN [Concomitant]
     Indication: SPINAL COLUMN STENOSIS
     Route: 048
     Dates: end: 20120606
  10. EURODIN (ESTAZOLAM) [Concomitant]
     Indication: INSOMNIA
     Route: 048
     Dates: end: 20120601
  11. LIDOMEX [Concomitant]
     Indication: PROPHYLAXIS
     Dosage: TWICE/DAY
     Route: 061
     Dates: end: 20120604
  12. ANTEBATE [Concomitant]
     Indication: PROPHYLAXIS
     Dosage: TWICE/DAY
     Route: 061
     Dates: end: 20120604
  13. LOXONIN [Concomitant]
     Indication: PROPHYLAXIS
     Dosage: 60MG/DAY, AS NEEDED.
     Route: 048
  14. MUCOSTA [Concomitant]
     Indication: PROPHYLAXIS
     Route: 048
  15. MUCOSTA [Concomitant]
     Dosage: 100MG/DAY, AS NEEDED.
     Route: 048
  16. LAXOBERON [Concomitant]
     Indication: CONSTIPATION
     Route: 050
  17. MAGLAX [Concomitant]
     Indication: CONSTIPATION
     Route: 048
     Dates: start: 20120514
  18. MAGLAX [Concomitant]
     Route: 048
     Dates: start: 20120606, end: 20120606
  19. ZYLORIC [Concomitant]
     Indication: PROPHYLAXIS
     Route: 048
     Dates: start: 20120518, end: 20120529

REACTIONS (2)
  - Rash [Unknown]
  - Rash [Recovering/Resolving]
